FAERS Safety Report 5753143-4 (Version None)
Quarter: 2008Q2

REPORT INFORMATION
  Report Type: 
  Country: None (occurrence: None)
  Receive Date: 20080530
  Receipt Date: 20080519
  Transmission Date: 20081010
  Serious: Yes (Hospitalization)
  Sender: FDA-Public Use
  Company Number: US-JNJFOC-20080504002

PATIENT
  Sex: Female
  Weight: 62.14 kg

DRUGS (8)
  1. DURAGESUC [Suspect]
     Route: 062
  2. DURAGESUC [Suspect]
     Indication: BACK PAIN
     Route: 062
  3. ASPIRIN [Concomitant]
     Indication: DRUG USE FOR UNKNOWN INDICATION
     Route: 048
  4. DIOVAN [Concomitant]
     Indication: BLOOD PRESSURE
     Route: 048
  5. SYNTHROID [Concomitant]
     Indication: HYPOTHYROIDISM
     Route: 048
  6. NAMENDA [Concomitant]
     Indication: DEMENTIA
     Route: 048
  7. GEMFIBROZIL [Concomitant]
     Indication: DRUG USE FOR UNKNOWN INDICATION
     Route: 048
  8. ARICEPT [Concomitant]
     Indication: DEMENTIA
     Route: 048

REACTIONS (5)
  - CONVULSION [None]
  - DEPRESSION [None]
  - FALL [None]
  - PELVIC FRACTURE [None]
  - SOMNOLENCE [None]
